FAERS Safety Report 7602808-8 (Version None)
Quarter: 2011Q3

REPORT INFORMATION
  Report Type: 
  Country: None (occurrence: None)
  Receive Date: 20110711
  Receipt Date: 20110711
  Transmission Date: 20111222
  Serious: No
  Sender: FDA-Public Use
  Company Number: None

PATIENT
  Age: 37 Year
  Sex: Male
  Weight: 82.5547 kg

DRUGS (1)
  1. PROPECIA [Suspect]
     Indication: ANDROGENETIC ALOPECIA
     Dosage: 1MG 1 PER DAY PO
     Route: 048
     Dates: start: 20071213, end: 20071227

REACTIONS (12)
  - PROSTATIC DISORDER [None]
  - TESTICULAR DISORDER [None]
  - BREAST SWELLING [None]
  - HYPOAESTHESIA [None]
  - ERECTILE DYSFUNCTION [None]
  - PENIS DISORDER [None]
  - TESTICULAR PAIN [None]
  - PENILE SIZE REDUCED [None]
  - BREAST PAIN [None]
  - DIZZINESS [None]
  - BLOOD TESTOSTERONE DECREASED [None]
  - VERTIGO [None]
